FAERS Safety Report 4617749-8 (Version None)
Quarter: 2005Q1

REPORT INFORMATION
  Report Type: 
  Country: None (occurrence: None)
  Receive Date: 20050324
  Receipt Date: 20050317
  Transmission Date: 20050727
  Serious: Yes (Life-Threatening, Hospitalization)
  Sender: FDA-Public Use
  Company Number: US-BRISTOL-MYERS SQUIBB COMPANY-12906194

PATIENT
  Age: 52 Year
  Sex: Female

DRUGS (1)
  1. TEQUIN [Suspect]
     Indication: SINUSITIS

REACTIONS (3)
  - ANAEMIA [None]
  - ISCHAEMIC STROKE [None]
  - THROMBOTIC THROMBOCYTOPENIC PURPURA [None]
